FAERS Safety Report 7148719-6 (Version None)
Quarter: 2010Q4

REPORT INFORMATION
  Report Type: 
  Country: None (occurrence: None)
  Receive Date: 20101209
  Receipt Date: 20101201
  Transmission Date: 20110411
  Serious: Yes (Hospitalization)
  Sender: FDA-Public Use
  Company Number: US-ROCHE-745915

PATIENT
  Sex: Female

DRUGS (5)
  1. TRASTUZUMAB [Suspect]
     Indication: BREAST CANCER
     Route: 042
     Dates: start: 20100729
  2. LAPATINIB [Suspect]
     Indication: BREAST CANCER
     Route: 048
     Dates: start: 20100729
  3. DOCETAXEL [Suspect]
     Indication: BREAST CANCER
     Route: 042
     Dates: start: 20100729
  4. CARBOPLATIN [Suspect]
     Indication: BREAST CANCER
     Route: 042
     Dates: start: 20100729
  5. GRANULOCYTE COLONY STIMULATING FACTOR [Concomitant]

REACTIONS (1)
  - HYPOVOLAEMIA [None]
